FAERS Safety Report 5135330-1 (Version None)
Quarter: 2006Q4

REPORT INFORMATION
  Report Type: 
  Country: None (occurrence: None)
  Receive Date: 20061026
  Receipt Date: 20061024
  Transmission Date: 20070319
  Serious: Yes (Death)
  Sender: FDA-Public Use
  Company Number: JP-NOVOPROD-257986

PATIENT
  Age: 17 Year
  Sex: Male

DRUGS (1)
  1. NOVOSEVEN [Suspect]
     Indication: TRAUMATIC HAEMORRHAGE
     Dosage: 4.8 MG, BID
     Route: 042
     Dates: start: 20060930

REACTIONS (2)
  - DRUG INEFFECTIVE [None]
  - SHOCK HAEMORRHAGIC [None]
